FAERS Safety Report 7064105-1 (Version None)
Quarter: 2010Q4

REPORT INFORMATION
  Report Type: 
  Country: None (occurrence: None)
  Receive Date: 20101027
  Receipt Date: 20101015
  Transmission Date: 20110411
  Serious: Yes (Hospitalization)
  Sender: FDA-Public Use
  Company Number: US-ELI_LILLY_AND_COMPANY-US201010003607

PATIENT
  Sex: Male
  Weight: 72.562 kg

DRUGS (19)
  1. BYETTA [Suspect]
     Indication: TYPE 2 DIABETES MELLITUS
     Dosage: 10 UG, 2/D
     Route: 058
  2. BYETTA [Suspect]
     Dosage: 10 UG, 2/D
     Route: 058
  3. BYETTA [Suspect]
     Dosage: 10 UG, 2/D
     Route: 058
  4. BYETTA [Suspect]
     Dosage: 10 UG, 2/D
     Route: 058
  5. BYETTA [Suspect]
     Dosage: 10 UG, 2/D
     Route: 058
  6. BYETTA [Suspect]
     Dosage: 10 UG, 2/D
     Route: 058
  7. BYETTA [Suspect]
     Dosage: 10 UG, 2/D
     Route: 058
  8. BYETTA [Suspect]
     Dosage: 10 UG, 2/D
     Route: 058
  9. LANTUS [Concomitant]
     Indication: TYPE 2 DIABETES MELLITUS
     Dosage: 10 U, 2/D
     Dates: end: 20101007
  10. LANTUS [Concomitant]
     Dosage: 38 U, DAILY (1/D)
     Dates: start: 20101007
  11. AMARYL [Concomitant]
     Indication: TYPE 2 DIABETES MELLITUS
     Dosage: 2 MG, DAILY (1/D)
  12. SYNTHROID [Concomitant]
     Indication: THYROID DISORDER
     Dosage: 100 UG, DAILY (1/D)
  13. LISINOPRIL [Concomitant]
     Indication: PRODUCT USED FOR UNKNOWN INDICATION
     Dosage: 10 MG, DAILY (1/D)
  14. ZOLOFT [Concomitant]
     Indication: PRODUCT USED FOR UNKNOWN INDICATION
     Dosage: 50 MG, EACH EVENING
  15. PLAVIX [Concomitant]
     Indication: PRODUCT USED FOR UNKNOWN INDICATION
     Dosage: 75 MG, DAILY (1/D)
  16. ZOCOR [Concomitant]
     Indication: PRODUCT USED FOR UNKNOWN INDICATION
     Dosage: 80 MG, DAILY (1/D)
  17. LOPRESSOR [Concomitant]
     Indication: HYPERTENSION
     Dosage: 25 MG, 2/D
  18. ASPIRIN [Concomitant]
  19. TRICOR [Concomitant]

REACTIONS (4)
  - BLOOD GLUCOSE DECREASED [None]
  - GLYCOSYLATED HAEMOGLOBIN INCREASED [None]
  - OFF LABEL USE [None]
  - PNEUMONIA [None]
